FAERS Safety Report 8235496-0 (Version None)
Quarter: 2012Q1

REPORT INFORMATION
  Report Type: 
  Country: None (occurrence: None)
  Receive Date: 20120326
  Receipt Date: 20120313
  Transmission Date: 20120608
  Serious: Yes (Death, Hospitalization, Other)
  Sender: FDA-Public Use
  Company Number: JP-ROCHE-1000053

PATIENT
  Sex: Male

DRUGS (6)
  1. FAMOTIDINE [Concomitant]
     Indication: PROPHYLAXIS
     Route: 048
     Dates: start: 20110308
  2. LOXOPROFEN SODIUM [Concomitant]
     Indication: RHEUMATOID ARTHRITIS
  3. SELBEX [Concomitant]
     Route: 048
     Dates: start: 20110308
  4. AZULFIDINE [Concomitant]
     Indication: RHEUMATOID ARTHRITIS
     Dates: start: 20110308
  5. PREDNISOLONE [Concomitant]
     Route: 048
     Dates: start: 20110308
  6. ACTEMRA [Suspect]
     Indication: RHEUMATOID ARTHRITIS
     Route: 041
     Dates: start: 20110602, end: 20110728

REACTIONS (6)
  - DISSEMINATED INTRAVASCULAR COAGULATION [None]
  - PULMONARY HAEMORRHAGE [None]
  - ACUTE RESPIRATORY FAILURE [None]
  - PNEUMOTHORAX [None]
  - INFECTION [None]
  - METASTATIC NEOPLASM [None]
